FAERS Safety Report 25139662 (Version 1)
Quarter: 2025Q1

REPORT INFORMATION
  Report Type: Spontaneous
  Country: US (occurrence: None)
  Receive Date: 20250331
  Receipt Date: 20250331
  Transmission Date: 20250409
  Serious: No
  Sender: BANNER
  Company Number: US-PTA-005946

PATIENT
  Sex: Male

DRUGS (3)
  1. NAPROXEN [Suspect]
     Active Substance: NAPROXEN
     Indication: Pain
     Route: 048
  2. ADVIL [Concomitant]
     Active Substance: IBUPROFEN
  3. NAPROXEN [Suspect]
     Active Substance: NAPROXEN
     Indication: Meniscus injury
     Route: 048

REACTIONS (1)
  - Drug ineffective for unapproved indication [Unknown]
